FAERS Safety Report 7346320-2 (Version None)
Quarter: 2011Q1

REPORT INFORMATION
  Report Type: 
  Country: None (occurrence: None)
  Receive Date: 20110311
  Receipt Date: 20110214
  Transmission Date: 20110831
  Serious: No
  Sender: FDA-Public Use
  Company Number: US-B.I. PHARMACEUTICALS,INC./RIDGEFIELD-2010-BP-14694BP

PATIENT
  Sex: Female

DRUGS (8)
  1. SPIRIVA [Suspect]
     Indication: ASTHMA
     Route: 055
     Dates: start: 20080601
  2. LOVASTATIN [Concomitant]
  3. LANTUS [Concomitant]
     Dosage: 35 UNITS
  4. PROVENTIL [Concomitant]
     Dosage: PRN
  5. PRILOSEC [Concomitant]
     Dosage: 2 X DAY
  6. GABRAPINTINE [Concomitant]
     Dosage: 300 MG
  7. HUMALOG [Concomitant]
     Dosage: SLIDING SCALE
  8. TEMAZEPAM [Concomitant]
     Dosage: 30 MG

REACTIONS (3)
  - RASH [None]
  - RASH GENERALISED [None]
  - PRURITUS [None]
